FAERS Safety Report 10633065 (Version 1)
Quarter: 2014Q4

REPORT INFORMATION
  Report Type: Spontaneous
  Country: US (occurrence: US)
  Receive Date: 20141205
  Receipt Date: 20141205
  Transmission Date: 20150529
  Serious: No
  Sender: FDA-Public Use
  Company Number: US-BRISTOL-MYERS SQUIBB COMPANY-21412127

PATIENT
  Age: 61 Year
  Sex: Male

DRUGS (1)
  1. ELIQUIS [Suspect]
     Active Substance: APIXABAN
     Indication: ATRIAL FIBRILLATION
     Dosage: LAST DOSE ON: AUG14.
     Dates: start: 201407, end: 201408

REACTIONS (5)
  - Swelling [Unknown]
  - Arthralgia [Unknown]
  - Infection [Unknown]
  - Full blood count decreased [Unknown]
  - Proteinuria [Unknown]
